FAERS Safety Report 14836818 (Version 1)
Quarter: 2018Q2

REPORT INFORMATION
  Report Type: Report from Study
  Country: ES (occurrence: ES)
  Receive Date: 20180502
  Receipt Date: 20180502
  Transmission Date: 20180711
  Serious: Yes (Hospitalization)
  Sender: FDA-Public Use
  Company Number: ES-BAYER-2018-082810

PATIENT
  Age: 84 Year
  Sex: Male

DRUGS (7)
  1. TRAZODONA LAKOR [Concomitant]
     Dosage: 1 DF, UNK
     Route: 048
  2. ADIRO [Suspect]
     Active Substance: ASPIRIN
     Dosage: UNK
  3. INSULIN 2 [Concomitant]
     Dosage: UNK
     Route: 058
  4. GALVUS [Concomitant]
     Active Substance: VILDAGLIPTIN
     Dosage: UNK
     Route: 048
  5. SIMVASTATINA DAVUR [Concomitant]
     Active Substance: SIMVASTATIN
     Dosage: 20 MG, UNK
     Route: 048
  6. OMEPRAZOL [Concomitant]
     Active Substance: OMEPRAZOLE
     Dosage: UNK
     Route: 048
  7. DUODART [Concomitant]
     Active Substance: DUTASTERIDE\TAMSULOSIN
     Dosage: UNK
     Route: 048

REACTIONS (1)
  - Anaemia [Recovered/Resolved]

NARRATIVE: CASE EVENT DATE: 20170712
